FAERS Safety Report 25913599 (Version 2)
Quarter: 2025Q4

REPORT INFORMATION
  Report Type: Spontaneous
  Country: EU (occurrence: EU)
  Receive Date: 20251013
  Receipt Date: 20251016
  Transmission Date: 20260118
  Serious: Yes (Other)
  Sender: CELLTRION
  Company Number: EU-CELLTRION INC.-2025PT034294

PATIENT

DRUGS (4)
  1. ADALIMUMAB [Suspect]
     Active Substance: ADALIMUMAB
     Indication: Crohn^s disease
     Dosage: UNK
     Route: 065
  2. ADALIMUMAB [Suspect]
     Active Substance: ADALIMUMAB
  3. INFLIXIMAB [Suspect]
     Active Substance: INFLIXIMAB
     Indication: Crohn^s disease
  4. USTEKINUMAB [Suspect]
     Active Substance: USTEKINUMAB
     Indication: Crohn^s disease
     Dosage: UNK
     Route: 065

REACTIONS (10)
  - Crohn^s disease [Recovered/Resolved]
  - Angular cheilitis [Recovered/Resolved]
  - Nasal dryness [Unknown]
  - Nasal obstruction [Recovered/Resolved]
  - Skin exfoliation [Unknown]
  - Aphthous ulcer [Recovered/Resolved]
  - Dry mouth [Unknown]
  - Vestibulitis [Recovered/Resolved]
  - Therapy non-responder [Unknown]
  - Loss of therapeutic response [Unknown]
